FAERS Safety Report 9081815 (Version 2)
Quarter: 2013Q1

REPORT INFORMATION
  Report Type: Spontaneous
  Country: BR (occurrence: BR)
  Receive Date: 20130131
  Receipt Date: 20130313
  Transmission Date: 20140127
  Serious: Yes (Hospitalization, Other)
  Sender: FDA-Public Use
  Company Number: BR-RANBAXY-2013RR-64729

PATIENT
  Age: 18 Year
  Sex: Male

DRUGS (3)
  1. AMLODIPINE [Suspect]
     Dosage: APPROXIMATELY 30 TABLETS X 5 MG
     Route: 048
  2. HYDROCHLOROTHIAZIDE [Suspect]
     Dosage: 12 TABLETS OF HYDROCHLOROTHIAZIDE OF 25 MG
     Route: 048
  3. FLUNARIZINE [Suspect]
     Dosage: 25 TABLETS OF FLUNARIZINE OF 10 MG
     Route: 048

REACTIONS (9)
  - Cardiac disorder [Recovered/Resolved]
  - Atrioventricular block [Recovered/Resolved]
  - Bundle branch block left [Recovered/Resolved]
  - Hypotension [Recovering/Resolving]
  - Anuria [Recovered/Resolved]
  - Pulmonary oedema [Recovering/Resolving]
  - Hyperglycaemia [Unknown]
  - Intentional overdose [Unknown]
  - Suicide attempt [Unknown]
